FAERS Safety Report 17828588 (Version 1)
Quarter: 2020Q2

REPORT INFORMATION
  Report Type: Spontaneous
  Country: SK (occurrence: SK)
  Receive Date: 20200527
  Receipt Date: 20200527
  Transmission Date: 20200714
  Serious: Yes (Life-Threatening, Other)
  Sender: FDA-Public Use
  Company Number: SK-ACCORD-183138

PATIENT
  Sex: Male

DRUGS (9)
  1. MITOXANTRONE [Suspect]
     Active Substance: MITOXANTRONE HYDROCHLORIDE
     Indication: ACUTE MONOCYTIC LEUKAEMIA
  2. CYTARABINE/CYTARABINE HYDROCHLORIDE/CYTARABINE OCFOSFATE [Suspect]
     Active Substance: CYTARABINE
     Indication: ACUTE MONOCYTIC LEUKAEMIA
  3. ETOPOSIDE. [Suspect]
     Active Substance: ETOPOSIDE
     Indication: ACUTE MONOCYTIC LEUKAEMIA
  4. TIOGUANINE [Suspect]
     Active Substance: THIOGUANINE ANHYDROUS
     Indication: ACUTE MONOCYTIC LEUKAEMIA
  5. CLOFARABINE. [Suspect]
     Active Substance: CLOFARABINE
     Indication: ACUTE MONOCYTIC LEUKAEMIA
  6. IDARUBICIN [Suspect]
     Active Substance: IDARUBICIN
     Indication: ACUTE MONOCYTIC LEUKAEMIA
  7. METHOTREXATE. [Suspect]
     Active Substance: METHOTREXATE
     Indication: ACUTE MONOCYTIC LEUKAEMIA
  8. DAUNORUBICIN [Suspect]
     Active Substance: DAUNORUBICIN
     Indication: ACUTE MONOCYTIC LEUKAEMIA
  9. SORAFENIB/SORAFENIB TOSILATE [Suspect]
     Active Substance: SORAFENIB TOSYLATE
     Indication: ACUTE MONOCYTIC LEUKAEMIA

REACTIONS (2)
  - Fungal infection [Unknown]
  - Mucormycosis [Unknown]

NARRATIVE: CASE EVENT DATE: 2013
